FAERS Safety Report 15866482 (Version 1)
Quarter: 2019Q1

REPORT INFORMATION
  Report Type: Spontaneous
  Country: US (occurrence: US)
  Receive Date: 20190125
  Receipt Date: 20190125
  Transmission Date: 20190417
  Serious: No
  Sender: FDA-Public Use
  Company Number: US-PFIZER INC-2018095565

PATIENT
  Age: 15 Year
  Sex: Male
  Weight: 51.26 kg

DRUGS (9)
  1. GENOTROPIN [Suspect]
     Active Substance: SOMATROPIN
     Indication: BRAIN NEOPLASM
     Dosage: 2.6 MG, ALTERNATE DAY (2.6 MG ALTERNATING WITH 2.4 MG EVERY OTHER DAY, 6 DAYS/WK)
     Dates: start: 201802
  2. GENOTROPIN [Suspect]
     Active Substance: SOMATROPIN
     Dosage: 2.6 MG, ALTERNATE DAY (2.6 MG ALTERNATING WITH 2.4 MG EVERY OTHER DAY, 6 DAYS/WK; NIGHTLY)
     Dates: start: 2018
  3. GENOTROPIN [Suspect]
     Active Substance: SOMATROPIN
     Dosage: 2.4 MG, ALTERNATE DAY (2.6 MG ALTERNATING WITH 2.4 MG EVERY OTHER DAY, 6 DAYS/WK; NIGHTLY)
     Dates: start: 2018
  4. DESMOPRESSIN [Concomitant]
     Active Substance: DESMOPRESSIN
     Dosage: UNK
  5. TESTOSTERONE. [Concomitant]
     Active Substance: TESTOSTERONE
     Dosage: UNK
  6. GENOTROPIN [Suspect]
     Active Substance: SOMATROPIN
     Dosage: 2.4 MG, ALTERNATE DAY (2.6 MG ALTERNATING WITH 2.4 MG EVERY OTHER DAY, 6 DAYS/WK)
     Dates: start: 20180305
  7. LEVOTHYROXINE. [Concomitant]
     Active Substance: LEVOTHYROXINE
     Dosage: UNK
  8. GENOTROPIN [Suspect]
     Active Substance: SOMATROPIN
     Dosage: 2.4 MG, ALTERNATE DAY (2.6 MG ALTERNATING WITH 2.4 MG EVERY OTHER DAY, 6 DAYS/WK)
     Dates: start: 201802
  9. GENOTROPIN [Suspect]
     Active Substance: SOMATROPIN
     Dosage: 2.6 MG, ALTERNATE DAY (2.6 MG ALTERNATING WITH 2.4 MG EVERY OTHER DAY, 6 DAYS/WK)
     Dates: start: 20180305

REACTIONS (4)
  - Device issue [Unknown]
  - Blood prolactin increased [Unknown]
  - Intentional dose omission [Unknown]
  - Product dose omission [Unknown]

NARRATIVE: CASE EVENT DATE: 201803
